FAERS Safety Report 6453455-5 (Version None)
Quarter: 2009Q4

REPORT INFORMATION
  Report Type: 
  Country: None (occurrence: None)
  Receive Date: 20091124
  Receipt Date: 20091116
  Transmission Date: 20100525
  Serious: Yes (Other)
  Sender: FDA-Public Use
  Company Number: US-JNJFOC-20091105681

PATIENT
  Age: 14 Year
  Sex: Male

DRUGS (2)
  1. REMICADE [Suspect]
     Dosage: LAST INFUSION; DURATION OF THERAPY: 24 MONTHS
     Route: 042
     Dates: start: 20070101, end: 20090824
  2. REMICADE [Suspect]
     Indication: DRUG USE FOR UNKNOWN INDICATION
     Route: 042
     Dates: start: 20070101, end: 20090824

REACTIONS (1)
  - SUBARACHNOID HAEMORRHAGE [None]
